FAERS Safety Report 6655541-3 (Version None)
Quarter: 2010Q1

REPORT INFORMATION
  Report Type: 
  Country: None (occurrence: None)
  Receive Date: 20100317
  Receipt Date: 20100108
  Transmission Date: 20100710
  Serious: No
  Sender: FDA-Public Use
  Company Number: DSA_42307_2010

PATIENT
  Sex: Male

DRUGS (4)
  1. XENAZINE [Suspect]
     Indication: TARDIVE DYSKINESIA
     Dosage: 12.5 MG QD ORAL, 12.5 MG BID ORAL, 12.5 MG TID ORAL, 12.5 MG QID ORAL
     Route: 048
     Dates: start: 20091210, end: 20091216
  2. XENAZINE [Suspect]
     Indication: TARDIVE DYSKINESIA
     Dosage: 12.5 MG QD ORAL, 12.5 MG BID ORAL, 12.5 MG TID ORAL, 12.5 MG QID ORAL
     Route: 048
     Dates: start: 20091217, end: 20091223
  3. XENAZINE [Suspect]
     Indication: TARDIVE DYSKINESIA
     Dosage: 12.5 MG QD ORAL, 12.5 MG BID ORAL, 12.5 MG TID ORAL, 12.5 MG QID ORAL
     Route: 048
     Dates: start: 20091224, end: 20091230
  4. XENAZINE [Suspect]
     Indication: TARDIVE DYSKINESIA
     Dosage: 12.5 MG QD ORAL, 12.5 MG BID ORAL, 12.5 MG TID ORAL, 12.5 MG QID ORAL
     Route: 048
     Dates: start: 20091231

REACTIONS (1)
  - THINKING ABNORMAL [None]
